FAERS Safety Report 10868320 (Version 1)
Quarter: 2015Q1

REPORT INFORMATION
  Report Type: Spontaneous
  Country: US (occurrence: US)
  Receive Date: 20150225
  Receipt Date: 20150225
  Transmission Date: 20150721
  Serious: Yes (Other)
  Sender: FDA-Public Use
  Company Number: US-SANOFI-AVENTIS-2012SA018730

PATIENT
  Age: 63 Year
  Sex: Male
  Weight: 83.91 kg

DRUGS (12)
  1. DIOVAN [Concomitant]
     Active Substance: VALSARTAN
     Indication: ANGINA PECTORIS
  2. ZETIA [Concomitant]
     Active Substance: EZETIMIBE
     Indication: STENT PLACEMENT
  3. LEXAPRO [Concomitant]
     Active Substance: ESCITALOPRAM OXALATE
  4. PLAVIX [Suspect]
     Active Substance: CLOPIDOGREL BISULFATE
     Indication: ANGINA PECTORIS
     Dosage: PLAVIX WAS STOPPED FOR SHORT PERIODS DURING SOME PROCEDURAL REQUIREMENTS
     Route: 048
     Dates: start: 20070628, end: 20140105
  5. ASPIRIN. [Suspect]
     Active Substance: ASPIRIN
     Indication: PRODUCT USED FOR UNKNOWN INDICATION
     Route: 065
     Dates: start: 200706
  6. DIOVAN [Concomitant]
     Active Substance: VALSARTAN
     Indication: STENT PLACEMENT
  7. PLAVIX [Suspect]
     Active Substance: CLOPIDOGREL BISULFATE
     Indication: STENT PLACEMENT
     Dosage: PLAVIX WAS STOPPED FOR SHORT PERIODS DURING SOME PROCEDURAL REQUIREMENTS
     Route: 048
     Dates: start: 20070628, end: 20140105
  8. COREG [Concomitant]
     Active Substance: CARVEDILOL
  9. ZETIA [Concomitant]
     Active Substance: EZETIMIBE
     Indication: ANGINA PECTORIS
  10. METFORMIN [Concomitant]
     Active Substance: METFORMIN HYDROCHLORIDE
  11. CLONIDINE. [Concomitant]
     Active Substance: CLONIDINE
  12. GLUCOPHAGE [Concomitant]
     Active Substance: METFORMIN HYDROCHLORIDE

REACTIONS (3)
  - Gastrointestinal haemorrhage [Unknown]
  - Peptic ulcer [Unknown]
  - Barrett^s oesophagus [Unknown]

NARRATIVE: CASE EVENT DATE: 20111019
